FAERS Safety Report 4371375-7 (Version None)
Quarter: 2004Q2

REPORT INFORMATION
  Report Type: 
  Country: None (occurrence: None)
  Receive Date: 20040604
  Receipt Date: 20040521
  Transmission Date: 20050107
  Serious: Yes (Death)
  Sender: FDA-Public Use
  Company Number: 2004S1001493

PATIENT
  Age: 74 Year
  Sex: Female

DRUGS (5)
  1. CLOZAPINE [Suspect]
     Indication: PARKINSON'S DISEASE
     Dosage: 25MG QD, ORAL
     Route: 048
  2. LEVOTHYROXINE SODIUM [Concomitant]
  3. CARBIDOPA AND LEVODOPA [Concomitant]
  4. DONEPEZIL HCL [Concomitant]
  5. VENLAFAXINE [Concomitant]

REACTIONS (3)
  - CEREBROVASCULAR ACCIDENT [None]
  - PARKINSON'S DISEASE [None]
  - PNEUMONIA ASPIRATION [None]
